FAERS Safety Report 16278324 (Version 1)
Quarter: 2019Q2

REPORT INFORMATION
  Report Type: Spontaneous
  Country: CA (occurrence: CA)
  Receive Date: 20190506
  Receipt Date: 20190506
  Transmission Date: 20190711
  Serious: Yes (Hospitalization)
  Sender: FDA-Public Use
  Company Number: CA-PFIZER INC-2019190713

PATIENT
  Age: 68 Year
  Sex: Male

DRUGS (6)
  1. RISEDRONATE [Concomitant]
     Active Substance: RISEDRONATE SODIUM
     Dosage: 35 MG, WEEKLY
  2. AMYLASE/LIPASE/PROTEASE [Concomitant]
     Active Substance: AMYLASE\LIPASE\PROTEASE
     Dosage: 1 WITH MEALS
  3. ALLOPURINOL. [Concomitant]
     Active Substance: ALLOPURINOL
     Dosage: 300 MG, 1X/DAY
  4. COLCHICINE. [Concomitant]
     Active Substance: COLCHICINE
     Dosage: 0.6 MG, 1X/DAY
  5. XELJANZ [Suspect]
     Active Substance: TOFACITINIB CITRATE
     Indication: RHEUMATOID ARTHRITIS
     Dosage: 5 MG, 2X/DAY
     Route: 048
     Dates: start: 20170629
  6. VITAMIN B12 + FOLIC ACID [Concomitant]
     Dosage: 500 UG, 1X/DAY

REACTIONS (1)
  - Hip fracture [Unknown]
